FAERS Safety Report 16740763 (Version 3)
Quarter: 2019Q4

REPORT INFORMATION
  Report Type: Spontaneous
  Country: US (occurrence: US)
  Receive Date: 20190826
  Receipt Date: 20191105
  Transmission Date: 20200122
  Serious: No
  Sender: FDA-Public Use
  Company Number: US-PFIZER INC-2019363656

PATIENT
  Age: 71 Year
  Sex: Male
  Weight: 94.33 kg

DRUGS (4)
  1. HYDROCODONE/ACETAMINOPHEN [Concomitant]
     Active Substance: ACETAMINOPHEN\HYDROCODONE
     Dosage: UNK (5-325 MG)
  2. GABAPENTIN. [Concomitant]
     Active Substance: GABAPENTIN
     Indication: NEURALGIA
  3. GABAPENTIN. [Concomitant]
     Active Substance: GABAPENTIN
     Indication: PAIN IN EXTREMITY
     Dosage: 1 DF, 3X/DAY  (1 TABLET 3 TIMES A DAY)
     Dates: start: 20190830
  4. LYRICA [Suspect]
     Active Substance: PREGABALIN
     Indication: PAIN IN EXTREMITY
     Dosage: 75 MG, AS NEEDED ( AT NIGHT AND ONE MORE IN THE MORNING IF NEEDED)
     Route: 048
     Dates: start: 201904, end: 201908

REACTIONS (2)
  - Insomnia [Unknown]
  - Musculoskeletal discomfort [Recovered/Resolved]
